FAERS Safety Report 25635186 (Version 1)
Quarter: 2025Q3

REPORT INFORMATION
  Report Type: Spontaneous
  Country: US (occurrence: US)
  Receive Date: 20250802
  Receipt Date: 20250802
  Transmission Date: 20251020
  Serious: Yes (Other)
  Sender: ALEXION PHARMACEUTICALS
  Company Number: US-AstraZeneca-CH-00922150A

PATIENT
  Sex: Female

DRUGS (1)
  1. TAGRISSO [Suspect]
     Active Substance: OSIMERTINIB
     Route: 065

REACTIONS (7)
  - Diabetes mellitus [Unknown]
  - Diarrhoea [Unknown]
  - Malaise [Unknown]
  - Tremor [Unknown]
  - Depression [Unknown]
  - Dry skin [Unknown]
  - Anger [Unknown]
